FAERS Safety Report 6824299-7 (Version None)
Quarter: 2010Q3

REPORT INFORMATION
  Report Type: 
  Country: None (occurrence: None)
  Receive Date: 20100708
  Receipt Date: 20061018
  Transmission Date: 20110219
  Serious: No
  Sender: FDA-Public Use
  Company Number: UG-PFIZER INC-2006128599

PATIENT
  Sex: Female
  Weight: 58.06 kg

DRUGS (7)
  1. CHANTIX [Suspect]
     Indication: SMOKING CESSATION THERAPY
     Dates: start: 20061008, end: 20061015
  2. BENICAR [Concomitant]
     Indication: HYPERTENSION
  3. ESTRATEST [Concomitant]
  4. PERCOCET [Concomitant]
  5. NEURONTIN [Concomitant]
  6. METHADONE [Concomitant]
  7. VALIUM [Concomitant]

REACTIONS (3)
  - HEADACHE [None]
  - MIGRAINE [None]
  - NICOTINE DEPENDENCE [None]
